FAERS Safety Report 7772800-1 (Version None)
Quarter: 2011Q3

REPORT INFORMATION
  Report Type: 
  Country: None (occurrence: None)
  Receive Date: 20110922
  Receipt Date: 20100824
  Transmission Date: 20111222
  Serious: Yes (Other)
  Sender: FDA-Public Use
  Company Number: US-ASTRAZENECA-2008UW04656

PATIENT
  Age: 44 Year
  Sex: Female
  Weight: 112 kg

DRUGS (12)
  1. ZYPREXA [Concomitant]
  2. SEROQUEL [Suspect]
     Indication: BIPOLAR DISORDER
     Route: 048
     Dates: start: 20060101
  3. SEROQUEL [Suspect]
     Indication: ANXIETY
     Route: 048
     Dates: start: 20060101
  4. SEROQUEL [Suspect]
     Route: 048
     Dates: start: 20070613
  5. SEROQUEL [Suspect]
     Dosage: 100 MG T.I.D, 200 MG AT BED ITME
     Route: 048
     Dates: start: 20060819
  6. GEODON [Concomitant]
  7. SEROQUEL [Suspect]
     Indication: DEPRESSION
     Route: 048
     Dates: start: 20060101
  8. SEROQUEL [Suspect]
     Dosage: 100 MG T.I.D, 200 MG AT BED ITME
     Route: 048
     Dates: start: 20060819
  9. SEROQUEL [Suspect]
     Route: 048
     Dates: start: 20070613
  10. SEROQUEL [Suspect]
     Dosage: 100 MG T.I.D, 200 MG AT BED ITME
     Route: 048
     Dates: start: 20060819
  11. SEROQUEL [Suspect]
     Route: 048
     Dates: start: 20070613
  12. ACTOS [Concomitant]
     Dates: start: 20060914

REACTIONS (3)
  - DIABETIC COMA [None]
  - TYPE 2 DIABETES MELLITUS [None]
  - DIABETIC COMPLICATION [None]
